FAERS Safety Report 10321730 (Version 2)
Quarter: 2015Q1

REPORT INFORMATION
  Report Type: Other
  Country: US (occurrence: US)
  Receive Date: 20140719
  Receipt Date: 20150206
  Transmission Date: 20150720
  Serious: Yes (Hospitalization, Other)
  Sender: FDA-Public Use
  Company Number: US-GSKPPD-2014GSK040179

PATIENT
  Age: 68 Year
  Sex: Female

DRUGS (3)
  1. CILOSTAZOL. [Concomitant]
     Active Substance: CILOSTAZOL
  2. NORVASC [Concomitant]
     Active Substance: AMLODIPINE BESYLATE
     Dates: end: 200809
  3. AVANDIA [Suspect]
     Active Substance: ROSIGLITAZONE MALEATE
     Indication: DIABETES MELLITUS
     Route: 048

REACTIONS (2)
  - Cardiac failure congestive [Unknown]
  - Cardiomyopathy [Recovered/Resolved]

NARRATIVE: CASE EVENT DATE: 20080912
